FAERS Safety Report 4703419-4 (Version None)
Quarter: 2005Q2

REPORT INFORMATION
  Report Type: 
  Country: None (occurrence: None)
  Receive Date: 20050629
  Receipt Date: 20050614
  Transmission Date: 20051028
  Serious: Yes (Death)
  Sender: FDA-Public Use
  Company Number: 206286

PATIENT
  Age: 37 Year
  Sex: Female

DRUGS (3)
  1. MABTHERA                     (RITUXIMAB) [Suspect]
     Indication: B-CELL LYMPHOMA
     Dosage: 700 MG, INTRAVNEOUS
     Route: 042
     Dates: start: 20040305, end: 20040305
  2. SOLU-MEDROL [Suspect]
     Dosage: 20 MG, QD, INTRAVENOUS
     Route: 042
     Dates: start: 20040302, end: 20040302
  3. CYCLOPHOSPHAMIDE [Suspect]
     Dosage: 2 G, QD, INTRAVENOUS
     Route: 042
     Dates: start: 20040302, end: 20040302

REACTIONS (2)
  - ESCHERICHIA SEPSIS [None]
  - SEPTIC SHOCK [None]
